FAERS Safety Report 14934483 (Version 1)
Quarter: 2018Q2

REPORT INFORMATION
  Report Type: Spontaneous
  Country: US (occurrence: US)
  Receive Date: 20180505
  Receipt Date: 20180505
  Transmission Date: 20180711
  Serious: Yes (Disabling)
  Sender: FDA-Public Use
  Company Number: None

PATIENT
  Age: 68 Year
  Sex: Female
  Weight: 63.45 kg

DRUGS (10)
  1. XARELTO [Concomitant]
     Active Substance: RIVAROXABAN
  2. LOSARTAN POTASSIUM. [Concomitant]
     Active Substance: LOSARTAN POTASSIUM
  3. SENIOR VITAMINS [Concomitant]
  4. VITAMIN D3 [Concomitant]
     Active Substance: CHOLECALCIFEROL
  5. BUPROPION HCL XL 150 MG [Suspect]
     Active Substance: BUPROPION HYDROCHLORIDE
     Indication: DEPRESSION
     Dosage: ?          QUANTITY:1 TABLET(S);?
     Route: 048
  6. MELOXICAM. [Concomitant]
     Active Substance: MELOXICAM
  7. VITAMIN B12 [Concomitant]
     Active Substance: CYANOCOBALAMIN
  8. SIMVASTATIN. [Concomitant]
     Active Substance: SIMVASTATIN
  9. HYDROMORPHONE [Concomitant]
     Active Substance: HYDROMORPHONE
  10. FLAX OIL [Concomitant]

REACTIONS (4)
  - Product substitution issue [None]
  - Drug ineffective [None]
  - Lacrimation increased [None]
  - Product quality issue [None]

NARRATIVE: CASE EVENT DATE: 20180427
